FAERS Safety Report 21993777 (Version 4)
Quarter: 2023Q2

REPORT INFORMATION
  Report Type: Spontaneous
  Country: US (occurrence: None)
  Receive Date: 20230215
  Receipt Date: 20230428
  Transmission Date: 20230721
  Serious: Yes (Hospitalization, Other)
  Sender: FDA-Public Use
  Company Number: US-Hikma Pharmaceuticals USA Inc.-US-H14001-23-00392

PATIENT
  Age: 10 Year
  Sex: Male
  Weight: 40.8 kg

DRUGS (3)
  1. DEXAMETHASONE [Suspect]
     Active Substance: DEXAMETHASONE
     Indication: Leukaemia
     Route: 048
     Dates: start: 20221215
  2. RUXOLITINIB [Suspect]
     Active Substance: RUXOLITINIB
     Indication: Leukaemia
     Route: 048
     Dates: start: 20220714
  3. VINCRISTINE [Suspect]
     Active Substance: VINCRISTINE
     Indication: Leukaemia
     Route: 042
     Dates: start: 20220728

REACTIONS (15)
  - Hypoxia [Recovered/Resolved]
  - Haematuria [Recovered/Resolved]
  - Cystitis haemorrhagic [Unknown]
  - Soft tissue disorder [Unknown]
  - Vertebral wedging [Unknown]
  - Stress fracture [Unknown]
  - Anaemia [Unknown]
  - Hepatic steatosis [Unknown]
  - Haematocrit decreased [Unknown]
  - Haemoglobin decreased [Unknown]
  - Neutrophil count decreased [Unknown]
  - Platelet count decreased [Unknown]
  - White blood cell count decreased [Unknown]
  - BK virus infection [Recovered/Resolved]
  - Urinary tract infection [Recovered/Resolved]

NARRATIVE: CASE EVENT DATE: 20221228
